FAERS Safety Report 7833772-4 (Version None)
Quarter: 2011Q4

REPORT INFORMATION
  Report Type: 
  Country: None (occurrence: None)
  Receive Date: 20111024
  Receipt Date: 20111014
  Transmission Date: 20120403
  Serious: Yes (Hospitalization)
  Sender: FDA-Public Use
  Company Number: US-ACTELION-A-NJ2011-54868

PATIENT

DRUGS (8)
  1. ADCIRCA [Concomitant]
  2. TRACLEER [Suspect]
     Indication: PULMONARY ARTERIAL HYPERTENSION
     Dosage: 125 MG, BID
     Route: 048
     Dates: start: 20040101
  3. LISINOPRIL [Concomitant]
  4. COREG [Concomitant]
  5. FUROSEMIDE [Concomitant]
  6. POTASSIUM CHLORIDE [Concomitant]
  7. DIGOXIN [Concomitant]
  8. FLONASE [Concomitant]

REACTIONS (2)
  - PULMONARY VALVE INCOMPETENCE [None]
  - PULMONARY VALVE REPLACEMENT [None]
